FAERS Safety Report 17511626 (Version 3)
Quarter: 2020Q1

REPORT INFORMATION
  Report Type: Spontaneous
  Country: CZ (occurrence: CZ)
  Receive Date: 20200308
  Receipt Date: 20200328
  Transmission Date: 20200409
  Serious: Yes (Hospitalization, Other)
  Sender: FDA-Public Use
  Company Number: NVSC2020CZ061249

PATIENT
  Sex: Female

DRUGS (7)
  1. CLINDAMYCIN. [Concomitant]
     Active Substance: CLINDAMYCIN
     Indication: RASH
     Dosage: UNK
     Route: 042
  2. DOXYHEXAL [Suspect]
     Active Substance: DOXYCYCLINE
     Indication: PYODERMA
     Dosage: UNK
     Route: 048
     Dates: start: 201908
  3. SALOFALK [Concomitant]
     Indication: PRODUCT USED FOR UNKNOWN INDICATION
     Dosage: 1 G, QW
     Route: 065
  4. DOXYHEXAL [Suspect]
     Active Substance: DOXYCYCLINE
     Dosage: 100 MG, BID
     Route: 048
     Dates: start: 20191024, end: 20191103
  5. AZITHROMYCIN ANHYDROUS. [Suspect]
     Active Substance: AZITHROMYCIN ANHYDROUS
     Indication: LIMB DISCOMFORT
     Dosage: UNK
     Route: 048
  6. CLOBETASOL PROPIONATE. [Concomitant]
     Active Substance: CLOBETASOL PROPIONATE
     Indication: PRODUCT USED FOR UNKNOWN INDICATION
     Dosage: UNK
     Route: 065
  7. PENTASA [Concomitant]
     Active Substance: MESALAMINE
     Indication: PRODUCT USED FOR UNKNOWN INDICATION
     Dosage: 2 G (0-0-2)
     Route: 065

REACTIONS (8)
  - Hyperkeratosis [Unknown]
  - Drug ineffective [Unknown]
  - Limb discomfort [Unknown]
  - Product use in unapproved indication [Unknown]
  - Pyoderma gangrenosum [Unknown]
  - Mass [Unknown]
  - Hyperplasia [Unknown]
  - Vasculitis [Unknown]

NARRATIVE: CASE EVENT DATE: 201909
